FAERS Safety Report 21057935 (Version 1)
Quarter: 2022Q3

REPORT INFORMATION
  Report Type: Spontaneous
  Country: CN (occurrence: None)
  Receive Date: 20220708
  Receipt Date: 20220708
  Transmission Date: 20221027
  Serious: Yes (Life-Threatening, Hospitalization, Other)
  Sender: FDA-Public Use
  Company Number: 2022A242911

PATIENT
  Age: 20761 Day
  Sex: Female
  Weight: 50 kg

DRUGS (2)
  1. OSIMERTINIB MESYLATE [Suspect]
     Active Substance: OSIMERTINIB MESYLATE
     Indication: Lung neoplasm malignant
     Route: 048
     Dates: start: 20220501, end: 20220616
  2. THROMBOPOIETIN [Concomitant]
     Active Substance: THROMBOPOIETIN

REACTIONS (6)
  - Platelet count decreased [Recovering/Resolving]
  - Headache [Unknown]
  - Brain oedema [Unknown]
  - Dizziness [Unknown]
  - Nausea [Unknown]
  - Vomiting [Unknown]

NARRATIVE: CASE EVENT DATE: 20220616
